FAERS Safety Report 5521303-3 (Version None)
Quarter: 2007Q4

REPORT INFORMATION
  Report Type: 
  Country: None (occurrence: None)
  Receive Date: 20071119
  Receipt Date: 20061116
  Transmission Date: 20080405
  Serious: No
  Sender: FDA-Public Use
  Company Number: US-BOEHRINGER INGELHEIM PHARMACEUTICALS, INC.-2007-BP-01097BP

PATIENT
  Age: 3 Year
  Sex: Male

DRUGS (1)
  1. ZANTAC 150 [Suspect]
     Dosage: 1 TABLET ONCE
     Route: 048
     Dates: start: 20061116, end: 20061116

REACTIONS (1)
  - MEDICATION ERROR [None]
